FAERS Safety Report 6177692-2 (Version None)
Quarter: 2009Q2

REPORT INFORMATION
  Report Type: 
  Country: None (occurrence: None)
  Receive Date: 20090501
  Receipt Date: 20090501
  Transmission Date: 20091009
  Serious: Yes (Life-Threatening, Hospitalization)
  Sender: FDA-Public Use
  Company Number: None

PATIENT
  Sex: Female
  Weight: 69.4 kg

DRUGS (12)
  1. DASATINIB [Suspect]
     Indication: ACUTE LYMPHOCYTIC LEUKAEMIA
     Dosage: 50 MG PO Q12H
     Route: 048
  2. ACYCLOVIR [Concomitant]
  3. ATIVAN [Concomitant]
  4. CARDIZEM CD [Concomitant]
  5. DILAUDID [Concomitant]
  6. FLUCONAZOLE [Concomitant]
  7. VATIL [Concomitant]
  8. BACTRIM DS [Concomitant]
  9. ZOFRAN [Concomitant]
  10. HYPERCVAD [Concomitant]
  11. ETHANOL [Concomitant]
  12. CYTAZIDINE [Concomitant]

REACTIONS (4)
  - ELECTROCARDIOGRAM QT PROLONGED [None]
  - PLEURAL EFFUSION [None]
  - SINUS TACHYCARDIA [None]
  - SUPRAVENTRICULAR TACHYCARDIA [None]
